FAERS Safety Report 9094333 (Version 1)
Quarter: 2013Q1

REPORT INFORMATION
  Report Type: Report from Study
  Country: AT (occurrence: AT)
  Receive Date: 20130218
  Receipt Date: 20130218
  Transmission Date: 20140127
  Serious: Yes (Hospitalization)
  Sender: FDA-Public Use
  Company Number: AT-ROCHE-658140

PATIENT
  Age: 65 Year
  Sex: Female
  Weight: 54 kg

DRUGS (3)
  1. MABTHERA [Suspect]
     Indication: POLYNEUROPATHY CHRONIC
     Dosage: CYCLE 1, DOSE: 2X500 MG
     Route: 042
     Dates: start: 200812, end: 200901
  2. ARAVA [Suspect]
     Indication: PRODUCT USED FOR UNKNOWN INDICATION
     Route: 065
  3. VALTREX [Concomitant]
     Route: 065

REACTIONS (1)
  - Renal abscess [Recovered/Resolved]
